FAERS Safety Report 4582418-X (Version None)
Quarter: 2005Q1

REPORT INFORMATION
  Report Type: 
  Country: None (occurrence: None)
  Receive Date: 20050119
  Receipt Date: 20040709
  Transmission Date: 20050727
  Serious: Yes (Death)
  Sender: FDA-Public Use
  Company Number: US-JNJFOC-20040506505

PATIENT
  Sex: Male

DRUGS (1)
  1. DOXIL [Suspect]
     Indication: MULTIPLE MYELOMA
     Dosage: 80 MG, 1 IN 4 WEEK, INTRAVENOUS
     Route: 042
     Dates: start: 20031211, end: 20040102

REACTIONS (1)
  - MULTIPLE MYELOMA [None]
